FAERS Safety Report 9379284 (Version 2)
Quarter: 2013Q3

REPORT INFORMATION
  Report Type: Spontaneous
  Country: US (occurrence: None)
  Receive Date: 20130626
  Receipt Date: 20130716
  Transmission Date: 20140515
  Serious: Yes (Hospitalization)
  Sender: FDA-Public Use
  Company Number: JPI-P-032942

PATIENT
  Age: 63 Year
  Sex: Male
  Weight: 77.11 kg

DRUGS (2)
  1. XYREM(500 MILLIGRAM/MILLILITERS, SOLUTION)(SODIUM OXYBATE) [Suspect]
     Indication: NARCOLEPSY
     Dosage: 9 GM (4.5 GM,2 IN 1 D)?
     Route: 048
     Dates: start: 20060602
  2. XYREM(500 MILLIGRAM/MILLILITERS, SOLUTION)(SODIUM OXYBATE) [Suspect]
     Indication: SOMNOLENCE
     Dosage: 9 GM (4.5 GM,2 IN 1 D)?
     Route: 048
     Dates: start: 20060602

REACTIONS (1)
  - Pneumonia [None]
